FAERS Safety Report 19578196 (Version 1)
Quarter: 2021Q3

REPORT INFORMATION
  Report Type: Report from Study
  Country: MX (occurrence: MX)
  Receive Date: 20210719
  Receipt Date: 20210719
  Transmission Date: 20211014
  Serious: Yes (Disabling, Other)
  Sender: FDA-Public Use
  Company Number: NVSC2021MX163066

PATIENT
  Age: 84 Year
  Sex: Female
  Weight: 84 kg

DRUGS (1)
  1. GALVUS MET [Suspect]
     Active Substance: METFORMIN HYDROCHLORIDE\VILDAGLIPTIN
     Indication: BLOOD GLUCOSE INCREASED
     Dosage: 1 DF, BID
     Route: 048
     Dates: start: 20210516

REACTIONS (4)
  - Gait disturbance [Recovering/Resolving]
  - Body height decreased [Unknown]
  - Tendonitis [Recovering/Resolving]
  - Insomnia [Unknown]

NARRATIVE: CASE EVENT DATE: 20210709
